FAERS Safety Report 16064882 (Version 2)
Quarter: 2019Q2

REPORT INFORMATION
  Report Type: Spontaneous
  Country: JP (occurrence: JP)
  Receive Date: 20190312
  Receipt Date: 20190415
  Transmission Date: 20190711
  Serious: Yes (Other)
  Sender: FDA-Public Use
  Company Number: JP-009507513-1903JPN000799J

PATIENT
  Age: 66 Year
  Sex: Male

DRUGS (6)
  1. GRAZYNA TABLETS 50MG [Suspect]
     Active Substance: GRAZOPREVIR
     Dosage: 100 MILLIGRAM, QD
     Route: 048
     Dates: start: 20190326
  2. ERELSA TABLETS 50MG [Suspect]
     Active Substance: ELBASVIR
     Indication: CHRONIC HEPATITIS C
     Dosage: 50 MILLIGRAM, QD
     Route: 048
     Dates: end: 20190208
  3. ERELSA TABLETS 50MG [Suspect]
     Active Substance: ELBASVIR
     Dosage: 100 MILLIGRAM, QD
     Route: 048
     Dates: end: 201903
  4. GRAZYNA TABLETS 50MG [Suspect]
     Active Substance: GRAZOPREVIR
     Dosage: 100 MILLIGRAM, QD
     Route: 048
     Dates: end: 201903
  5. ERELSA TABLETS 50MG [Suspect]
     Active Substance: ELBASVIR
     Dosage: 100 MILLIGRAM, QD
     Route: 048
     Dates: start: 20190326
  6. GRAZYNA TABLETS 50MG [Suspect]
     Active Substance: GRAZOPREVIR
     Indication: CHRONIC HEPATITIS C
     Dosage: 100 MILLIGRAM, QD
     Route: 048
     Dates: end: 20190208

REACTIONS (1)
  - Renal impairment [Recovering/Resolving]

NARRATIVE: CASE EVENT DATE: 20190208
